FAERS Safety Report 25480053 (Version 1)
Quarter: 2025Q2

REPORT INFORMATION
  Report Type: Spontaneous
  Country: IT (occurrence: IT)
  Receive Date: 20250625
  Receipt Date: 20250625
  Transmission Date: 20250716
  Serious: Yes (Other)
  Sender: ELI LILLY AND COMPANY
  Company Number: IT-ELI_LILLY_AND_COMPANY-IT202506017744

PATIENT
  Age: 51 Year
  Sex: Female

DRUGS (1)
  1. CYMBALTA [Suspect]
     Active Substance: DULOXETINE HYDROCHLORIDE
     Indication: Depression
     Route: 065

REACTIONS (5)
  - Breast cancer [Unknown]
  - Breast cancer [Unknown]
  - Paresis [Unknown]
  - Lymphoedema [Unknown]
  - Thyroid disorder [Unknown]

NARRATIVE: CASE EVENT DATE: 19980101
